FAERS Safety Report 17252340 (Version 3)
Quarter: 2022Q3

REPORT INFORMATION
  Report Type: Spontaneous
  Country: US (occurrence: US)
  Receive Date: 20200109
  Receipt Date: 20220729
  Transmission Date: 20221026
  Serious: Yes (Death, Other)
  Sender: FDA-Public Use
  Company Number: US-PFIZER INC-2020000078

PATIENT
  Sex: Male

DRUGS (6)
  1. SOLU-MEDROL [Suspect]
     Active Substance: METHYLPREDNISOLONE SODIUM SUCCINATE
     Indication: Drug therapy
     Dosage: UNK
  2. TACROLIMUS [Suspect]
     Active Substance: TACROLIMUS
     Indication: Immunosuppression
     Dosage: UNK
  3. THYMOGLOBULIN [Suspect]
     Active Substance: LAPINE T-LYMPHOCYTE IMMUNE GLOBULIN
     Indication: Kidney transplant rejection
     Dosage: UNK
  4. MYCOPHENOLIC ACID [Suspect]
     Active Substance: MYCOPHENOLIC ACID
     Indication: Immunosuppression
     Dosage: UNK
  5. PREDNISOLONE [Suspect]
     Active Substance: PREDNISOLONE
     Indication: Immunosuppression
     Dosage: UNK
  6. BASILIXIMAB [Suspect]
     Active Substance: BASILIXIMAB
     Indication: Drug therapy
     Dosage: UNK

REACTIONS (4)
  - Microsporidia infection [Fatal]
  - Pyrexia [Fatal]
  - Myalgia [Fatal]
  - Fatigue [Unknown]
